FAERS Safety Report 21419069 (Version 2)
Quarter: 2023Q2

REPORT INFORMATION
  Report Type: Report from Study
  Country: CA (occurrence: CA)
  Receive Date: 20221006
  Receipt Date: 20230615
  Transmission Date: 20230721
  Serious: Yes (Other)
  Sender: FDA-Public Use
  Company Number: CA-NOVARTISPH-NVSC2021CA111662

PATIENT
  Age: 59 Year
  Sex: Male

DRUGS (2)
  1. KESIMPTA [Suspect]
     Active Substance: OFATUMUMAB
     Indication: Relapsing-remitting multiple sclerosis
     Dosage: UNK
     Route: 058
     Dates: start: 20210512, end: 20210519
  2. KESIMPTA [Suspect]
     Active Substance: OFATUMUMAB
     Dosage: UNK
     Route: 058
     Dates: start: 20220228

REACTIONS (6)
  - Urinary retention [Unknown]
  - Bladder dilatation [Unknown]
  - Muscle atrophy [Unknown]
  - Fatigue [Unknown]
  - SARS-CoV-2 test positive [Recovered/Resolved]
  - Wrong product procured [Unknown]

NARRATIVE: CASE EVENT DATE: 20210101
